FAERS Safety Report 6989813-X (Version None)
Quarter: 2010Q3

REPORT INFORMATION
  Report Type: 
  Country: None (occurrence: None)
  Receive Date: 20100916
  Receipt Date: 20100308
  Transmission Date: 20110219
  Serious: Yes (Other)
  Sender: FDA-Public Use
  Company Number: US-PFIZER INC-2010014895

PATIENT
  Sex: Male
  Weight: 117.91 kg

DRUGS (16)
  1. LYRICA [Suspect]
     Indication: CHRONIC FATIGUE SYNDROME
     Dosage: 75 MG, 2X/DAY
     Route: 048
     Dates: start: 20091001, end: 20100101
  2. LYRICA [Suspect]
     Indication: NEUROPATHY PERIPHERAL
  3. LYRICA [Suspect]
     Indication: FIBROMYALGIA
  4. TRUVADA [Concomitant]
     Dosage: UNK
  5. PREZISTA [Concomitant]
     Dosage: UNK
  6. NORVIR [Concomitant]
     Dosage: UNK
  7. LASIX [Concomitant]
     Dosage: UNK
  8. FAMVIR [Concomitant]
     Dosage: UNK
  9. MARINOL [Concomitant]
     Dosage: UNK
  10. UROXATRAL [Concomitant]
     Dosage: UNK
  11. EVOXAC [Concomitant]
     Indication: DRY MOUTH
     Dosage: UNK
  12. CYMBALTA [Concomitant]
     Dosage: UNK
  13. CRESTOR [Concomitant]
     Dosage: UNK
  14. SEROQUEL [Concomitant]
     Dosage: UNK
  15. TRICOR [Concomitant]
     Dosage: UNK
  16. BENADRYL [Concomitant]
     Dosage: UNK

REACTIONS (14)
  - ARTHRALGIA [None]
  - BACTERIAL INFECTION [None]
  - DIZZINESS [None]
  - DYSPNOEA [None]
  - FEELING COLD [None]
  - FLUID RETENTION [None]
  - GAIT DISTURBANCE [None]
  - HEADACHE [None]
  - HOT FLUSH [None]
  - HYPOTHYROIDISM [None]
  - NASOPHARYNGITIS [None]
  - SOMNOLENCE [None]
  - WEIGHT INCREASED [None]
  - WITHDRAWAL SYNDROME [None]
